FAERS Safety Report 6025773-6 (Version None)
Quarter: 2008Q4

REPORT INFORMATION
  Report Type: 
  Country: None (occurrence: None)
  Receive Date: 20081224
  Receipt Date: 20081219
  Transmission Date: 20090506
  Serious: Yes (Hospitalization)
  Sender: FDA-Public Use
  Company Number: SP02191

PATIENT
  Sex: Male

DRUGS (2)
  1. OSMOPREP [Suspect]
     Indication: COLONOSCOPY
     Dosage: ORAL
     Route: 048
  2. OSMOPREP [Suspect]
     Indication: PREOPERATIVE CARE
     Dosage: ORAL
     Route: 048

REACTIONS (1)
  - RESPIRATORY DISORDER [None]
